FAERS Safety Report 4967754-7 (Version None)
Quarter: 2006Q2

REPORT INFORMATION
  Report Type: 
  Country: None (occurrence: None)
  Receive Date: 20060410
  Receipt Date: 20060119
  Transmission Date: 20061013
  Serious: Yes (Other)
  Sender: FDA-Public Use
  Company Number: PHEH2006US01139

PATIENT
  Age: 35 Year
  Sex: Female
  Weight: 70.294 kg

DRUGS (1)
  1. FEMARA [Suspect]
     Indication: OVULATION INDUCTION
     Dosage: UNK, BID
     Dates: start: 20050823, end: 20050827

REACTIONS (6)
  - ABORTION INDUCED [None]
  - ARNOLD-CHIARI MALFORMATION [None]
  - DRUG EXPOSURE BEFORE PREGNANCY [None]
  - MATERNAL DRUGS AFFECTING FOETUS [None]
  - NEURAL TUBE DEFECT [None]
  - SPINA BIFIDA [None]
